FAERS Safety Report 6140542-4 (Version None)
Quarter: 2009Q2

REPORT INFORMATION
  Report Type: 
  Country: None (occurrence: None)
  Receive Date: 20090402
  Receipt Date: 20090320
  Transmission Date: 20091009
  Serious: Yes (Other)
  Sender: FDA-Public Use
  Company Number: FR-RANBAXY-2009RR-23026

PATIENT
  Age: 13 Year
  Sex: Male

DRUGS (7)
  1. FLUOXETINE [Suspect]
     Dosage: 20 MG, QD
     Dates: start: 19931025, end: 19931027
  2. FUROSEMIDE [Suspect]
  3. AMIODARONE HCL [Suspect]
  4. DIGOXIN [Suspect]
  5. ACENOCOUMAROL [Suspect]
  6. SPIRONOLACTONE [Suspect]
  7. BENAZEPRIL HYDROCHLORIDE [Suspect]

REACTIONS (1)
  - URINARY RETENTION [None]
